FAERS Safety Report 14670350 (Version 1)
Quarter: 2018Q1

REPORT INFORMATION
  Report Type: Spontaneous
  Country: US (occurrence: US)
  Receive Date: 20180322
  Receipt Date: 20180322
  Transmission Date: 20180509
  Serious: No
  Sender: FDA-Public Use
  Company Number: US-ADAMAS PHARMA, LLC-2018ADA00013

PATIENT
  Age: 65 Year
  Sex: Female

DRUGS (1)
  1. GOCOVRI [Suspect]
     Active Substance: AMANTADINE
     Dosage: 274 MG, 1X/DAY NIGHTLY AT BEDTIME
     Route: 048

REACTIONS (2)
  - Drug dose titration not performed [Recovered/Resolved]
  - Hallucination, auditory [Recovered/Resolved]
